FAERS Safety Report 10162130 (Version 2)
Quarter: 2014Q3

REPORT INFORMATION
  Report Type: Spontaneous
  Country: US (occurrence: None)
  Receive Date: 20140507
  Receipt Date: 20140701
  Transmission Date: 20150326
  Serious: Yes (Other)
  Sender: FDA-Public Use
  Company Number: 20140246

PATIENT
  Age: 56 Year
  Sex: Female
  Weight: 56.4 kg

DRUGS (8)
  1. LIDOCAINE HCL [Suspect]
     Active Substance: LIDOCAINE HYDROCHLORIDE
     Indication: DISCOMFORT
     Dosage: 20 ML, THEN 10 ML, THEN 30 ML SUBCUTANEOUS
     Route: 058
  2. CARVEDILOL. [Suspect]
     Active Substance: CARVEDILOL
     Indication: PRODUCT USED FOR UNKNOWN INDICATION
     Dosage: 6.25 MG TWICE DAILY UNKNOWN
  3. HYDRALAZINE [Concomitant]
     Active Substance: HYDRALAZINE HYDROCHLORIDE
  4. LIDOCAINE HCL [Suspect]
     Active Substance: LIDOCAINE HYDROCHLORIDE
     Indication: CARDIAC RESYNCHRONISATION THERAPY
     Dosage: 20 ML, THEN 10 ML, THEN 30 ML SUBCUTANEOUS
     Route: 058
  5. ISOSORBIDE DINITRATE. [Suspect]
     Active Substance: ISOSORBIDE DINITRATE
     Indication: PRODUCT USED FOR UNKNOWN INDICATION
     Dosage: 10 MG THREE TIMES DAILY UNKNOWN
  6. MIDAZOLAM [Concomitant]
     Active Substance: MIDAZOLAM\MIDAZOLAM HYDROCHLORIDE
  7. CANDESARTAN [Concomitant]
     Active Substance: CANDESARTAN
  8. FENTANYL. [Concomitant]
     Active Substance: FENTANYL

REACTIONS (6)
  - Generalised tonic-clonic seizure [None]
  - Pulseless electrical activity [None]
  - Metabolic acidosis [None]
  - Respiratory acidosis [None]
  - Toxicity to various agents [None]
  - Anaesthetic complication [None]
